FAERS Safety Report 15775326 (Version 2)
Quarter: 2019Q1

REPORT INFORMATION
  Report Type: Spontaneous
  Country: US (occurrence: US)
  Receive Date: 20181231
  Receipt Date: 20190110
  Transmission Date: 20190417
  Serious: No
  Sender: FDA-Public Use
  Company Number: PHEH2018US054162

PATIENT
  Sex: Female

DRUGS (1)
  1. OMEPRAZOLE. [Suspect]
     Active Substance: OMEPRAZOLE
     Indication: ULCER HAEMORRHAGE
     Dosage: 40 MG, QD
     Route: 048

REACTIONS (2)
  - Dysgeusia [Unknown]
  - Product odour abnormal [Unknown]
